FAERS Safety Report 12333698 (Version 2)
Quarter: 2016Q2

REPORT INFORMATION
  Report Type: Spontaneous
  Country: US (occurrence: US)
  Receive Date: 20160504
  Receipt Date: 20160504
  Transmission Date: 20160815
  Serious: No
  Sender: FDA-Public Use
  Company Number: US-NOVOPROD-486318

PATIENT
  Age: 34 Year
  Sex: Male

DRUGS (2)
  1. NOVOEIGHT 2000 IU [Suspect]
     Active Substance: TUROCTOCOG ALFA
     Indication: FACTOR VIII DEFICIENCY
     Route: 058
     Dates: start: 20160310
  2. NOVOEIGHT [Suspect]
     Active Substance: ANTIHEMOPHILIC FACTOR, HUMAN RECOMBINANT
     Indication: FACTOR VIII DEFICIENCY
     Dosage: UNK
     Route: 058
     Dates: start: 20160310

REACTIONS (1)
  - Influenza like illness [Recovered/Resolved]

NARRATIVE: CASE EVENT DATE: 20160310
